FAERS Safety Report 10891860 (Version 1)
Quarter: 2015Q1

REPORT INFORMATION
  Report Type: Spontaneous
  Country: CH (occurrence: CH)
  Receive Date: 20150306
  Receipt Date: 20150306
  Transmission Date: 20150721
  Serious: Yes (Hospitalization)
  Sender: FDA-Public Use
  Company Number: CH-BAYER-2015-027889

PATIENT
  Age: 71 Year
  Sex: Male
  Weight: 80 kg

DRUGS (19)
  1. CIPRALEX [Concomitant]
     Active Substance: ESCITALOPRAM OXALATE
     Dosage: 10 MG, QD
     Route: 048
     Dates: end: 20150217
  2. XOFIGO [Suspect]
     Active Substance: RADIUM RA-223 DICHLORIDE
     Indication: METASTASES TO BONE
  3. DUROGESIC [Concomitant]
     Active Substance: FENTANYL
     Indication: BONE PAIN
     Dosage: 200 ?G, Q72HR
     Route: 062
  4. SPIRICORT [Concomitant]
     Active Substance: PREDNISOLONE
     Indication: BONE PAIN
     Dosage: 10 MG, QD
     Route: 048
  5. OXYNORM [Concomitant]
     Active Substance: OXYCODONE HYDROCHLORIDE
     Dosage: 6X 25 MG / D, PRN
     Route: 048
     Dates: end: 20150217
  6. XGEVA [Concomitant]
     Active Substance: DENOSUMAB
     Route: 058
  7. METHADONE [Concomitant]
     Active Substance: METHADONE HYDROCHLORIDE
     Indication: BONE PAIN
     Dosage: 5 MG, BID
  8. NEXIUM [Concomitant]
     Active Substance: ESOMEPRAZOLE MAGNESIUM
     Dosage: 40 MG, BID
     Route: 048
  9. TENORMIN [Concomitant]
     Active Substance: ATENOLOL
     Indication: HYPERTENSION
     Dosage: 50 MG, QD
     Route: 048
  10. PRIMPERAN [Concomitant]
     Active Substance: METOCLOPRAMIDE HYDROCHLORIDE
     Dosage: 10 MG, PRN
     Route: 048
  11. BRUFEN [Concomitant]
     Active Substance: IBUPROFEN
     Dosage: 600 MG X 3, PRN
     Route: 048
  12. XOFIGO [Suspect]
     Active Substance: RADIUM RA-223 DICHLORIDE
     Indication: PROSTATE CANCER METASTATIC
     Dosage: 4.3 MBQ, ONCE
     Route: 042
     Dates: start: 20150205, end: 20150205
  13. ACIDUM FOLICUM [Concomitant]
     Active Substance: FOLIC ACID
     Indication: ANAEMIA FOLATE DEFICIENCY
     Dosage: 5 MG, QD
     Route: 048
  14. HALDOL [Concomitant]
     Active Substance: HALOPERIDOL
     Dosage: 10 MG / ML 5 DROPS 3X / D, PRN
     Route: 048
     Dates: end: 20150217
  15. ZOLADEX [Concomitant]
     Active Substance: GOSERELIN ACETATE
     Indication: PROSTATE CANCER
     Dosage: UNK
     Dates: start: 200709
  16. TOREM [Concomitant]
     Active Substance: TORSEMIDE
     Dosage: 10 MG, QD
     Route: 048
  17. STILNOX [Concomitant]
     Active Substance: ZOLPIDEM TARTRATE
     Dosage: 10 MG, QD
     Route: 048
  18. TRANSIPEG FORTE [Concomitant]
     Dosage: UNK, PRN
     Route: 048
  19. ZOFRAN [Concomitant]
     Active Substance: ONDANSETRON HYDROCHLORIDE
     Dosage: 8 MG, PRN
     Route: 048

REACTIONS (4)
  - Thrombocytopenia [Recovering/Resolving]
  - Leukopenia [Recovering/Resolving]
  - Anaemia [Recovering/Resolving]
  - Bone pain [Recovering/Resolving]

NARRATIVE: CASE EVENT DATE: 20150207
